FAERS Safety Report 10094528 (Version 1)
Quarter: 2014Q2

REPORT INFORMATION
  Report Type: Spontaneous
  Country: FR (occurrence: FR)
  Receive Date: 20140422
  Receipt Date: 20140422
  Transmission Date: 20141212
  Serious: Yes (Other)
  Sender: FDA-Public Use
  Company Number: FR-009507513-1404FRA009357

PATIENT
  Age: 46 Year
  Sex: Male

DRUGS (1)
  1. ISENTRESS [Suspect]
     Indication: HIV TEST POSITIVE
     Dosage: 2 DF, QD
     Route: 048
     Dates: start: 20120105, end: 20120705

REACTIONS (1)
  - Lipoma [Recovered/Resolved]
